FAERS Safety Report 10395760 (Version 1)
Quarter: 2014Q3

REPORT INFORMATION
  Report Type: Spontaneous
  Country: US (occurrence: US)
  Receive Date: 20140820
  Receipt Date: 20140820
  Transmission Date: 20150326
  Serious: Yes (Life-Threatening)
  Sender: FDA-Public Use
  Company Number: US-BAYER-2014-122145

PATIENT
  Age: 35 Year
  Sex: Female

DRUGS (1)
  1. MIRENA [Suspect]
     Active Substance: LEVONORGESTREL
     Dosage: 20 MCG/24HR, CONT
     Route: 015
     Dates: start: 20041220, end: 20081027

REACTIONS (14)
  - General physical health deterioration [None]
  - Device dislocation [None]
  - Pain [None]
  - Anxiety [None]
  - Infection [None]
  - Device breakage [None]
  - Injury [None]
  - Pregnancy with contraceptive device [None]
  - Drug ineffective [None]
  - Anhedonia [None]
  - Procedural pain [None]
  - Abortion induced [None]
  - Mental disorder [None]
  - Emotional distress [None]

NARRATIVE: CASE EVENT DATE: 20080905
